FAERS Safety Report 17209315 (Version 7)
Quarter: 2022Q2

REPORT INFORMATION
  Report Type: Report from Study
  Country: PT (occurrence: PT)
  Receive Date: 20191227
  Receipt Date: 20220627
  Transmission Date: 20220721
  Serious: Yes (Hospitalization, Other)
  Sender: FDA-Public Use
  Company Number: PT-ROCHE-2090935

PATIENT
  Age: 42 Year
  Sex: Female
  Weight: 57 kg

DRUGS (21)
  1. TRASTUZUMAB [Suspect]
     Active Substance: TRASTUZUMAB
     Indication: Breast cancer
     Dosage: 342 MILLIGRAM, Q3W, MOST RECENT DOSE PRIOR TO THE EVENT: 06/JUN/2017 AND 06/APR/2018
     Route: 042
     Dates: start: 20170606, end: 20180406
  2. TRASTUZUMAB [Suspect]
     Active Substance: TRASTUZUMAB
     Indication: HER2 positive breast cancer
     Dosage: 3.6 MILLIGRAM, Q3W, MOST RECENT DOSE PRIOR TO THE EVENT 17/MAY/2019 AND 28/JAN/2019
     Route: 042
     Dates: start: 20180806
  3. TRASTUZUMAB [Suspect]
     Active Substance: TRASTUZUMAB
     Dosage: 600 MILLIGRAM, MONTHLY
     Route: 042
     Dates: start: 20200615
  4. DOCETAXEL [Suspect]
     Active Substance: DOCETAXEL
     Indication: Breast cancer
     Dosage: 122 MILLIGRAM, Q3W (MOST RECENT DOSE PRIOR TO THE EVENT: 06/JUN/2017, 04/JUL/2017 AND 18/JUL/2017)
     Route: 042
     Dates: start: 20170606, end: 20170704
  5. DOCETAXEL [Suspect]
     Active Substance: DOCETAXEL
     Indication: HER2 positive breast cancer
     Dosage: 91.5 MILLIGRAM, Q3W
     Route: 042
     Dates: start: 20170718, end: 20171102
  6. ADO-TRASTUZUMAB EMTANSINE [Suspect]
     Active Substance: ADO-TRASTUZUMAB EMTANSINE
     Indication: Breast cancer
     Dosage: 3.6 MILLIGRAM/KILOGRAM, Q3W (MOST RECENT DOSE 17/MAY/2019 AND 28/JAN/2019)
     Route: 042
  7. ADO-TRASTUZUMAB EMTANSINE [Suspect]
     Active Substance: ADO-TRASTUZUMAB EMTANSINE
     Indication: HER2 positive breast cancer
     Dosage: 3.6 MILLIGRAM/KILOGRAM, Q3W
     Route: 042
     Dates: start: 20190213, end: 20190327
  8. ADO-TRASTUZUMAB EMTANSINE [Suspect]
     Active Substance: ADO-TRASTUZUMAB EMTANSINE
     Dosage: 180 MILLIGRAM, Q3W
     Route: 042
     Dates: start: 20190930, end: 20191001
  9. ADO-TRASTUZUMAB EMTANSINE [Suspect]
     Active Substance: ADO-TRASTUZUMAB EMTANSINE
     Dosage: 3.6 MILLIGRAM/KILOGRAM, Q3W
     Route: 042
     Dates: start: 20190628, end: 20190717
  10. ADO-TRASTUZUMAB EMTANSINE [Suspect]
     Active Substance: ADO-TRASTUZUMAB EMTANSINE
     Dosage: 3.6 MILLIGRAM/KILOGRAM, Q3W
     Route: 042
     Dates: start: 20190517, end: 20190606
  11. ADO-TRASTUZUMAB EMTANSINE [Suspect]
     Active Substance: ADO-TRASTUZUMAB EMTANSINE
     Dosage: 3.6 MILLIGRAM/KILOGRAM, Q3W
     Route: 042
     Dates: start: 20180806, end: 20190128
  12. ADO-TRASTUZUMAB EMTANSINE [Suspect]
     Active Substance: ADO-TRASTUZUMAB EMTANSINE
     Dosage: 3.6 MILLIGRAM/KILOGRAM, Q3W
     Route: 042
     Dates: start: 20190726, end: 20190814
  13. ADO-TRASTUZUMAB EMTANSINE [Suspect]
     Active Substance: ADO-TRASTUZUMAB EMTANSINE
     Dosage: 144 MILLIGRAM, Q3W
     Route: 042
     Dates: start: 20191106, end: 20200522
  14. PERTUZUMAB [Suspect]
     Active Substance: PERTUZUMAB
     Indication: HER2 positive breast cancer
     Dosage: 420 MILLIGRAM, Q3W, MOST RECENT DOSE PRIOR TO THE EVENT: 06/JUN/2017 AND 06/APR/2018
     Route: 042
     Dates: start: 20170606
  15. PERTUZUMAB [Suspect]
     Active Substance: PERTUZUMAB
     Indication: Breast cancer
  16. VINORELBINE [Suspect]
     Active Substance: VINORELBINE TARTRATE
     Indication: HER2 positive breast cancer
     Dosage: 100 MILLIGRAM (ONCE A WEEK, TWO WEEKS IN A ROW WITH 2-WEE
     Route: 048
     Dates: start: 20210426
  17. VINORELBINE [Suspect]
     Active Substance: VINORELBINE TARTRATE
     Dosage: 50 MILLIGRAM, START 15-JUN-2020
     Route: 048
     Dates: start: 20200615
  18. VINORELBINE [Suspect]
     Active Substance: VINORELBINE TARTRATE
     Indication: HER2 positive breast cancer
     Dosage: 30 MILLIGRAM/SQ. METER (ONCE A WEEK, TWO WEEKS IN A
     Route: 042
     Dates: start: 20200615, end: 20210301
  19. ACETAMINOPHEN [Concomitant]
     Active Substance: ACETAMINOPHEN
     Indication: Pyrexia
     Dosage: 1000 MILLIGRAM
     Route: 048
     Dates: start: 20170704
  20. BISOPROLOL [Concomitant]
     Active Substance: BISOPROLOL
     Indication: Product used for unknown indication
     Dosage: UNK
     Route: 065
  21. BISOPROLOL [Concomitant]
     Active Substance: BISOPROLOL
     Dosage: 1 MILLIGRAM
     Route: 048

REACTIONS (3)
  - Neutrophilia [Recovered/Resolved]
  - Febrile neutropenia [Recovered/Resolved]
  - Neutropenia [Recovered/Resolved]

NARRATIVE: CASE EVENT DATE: 20170704
